FAERS Safety Report 8813096 (Version 1)
Quarter: 2012Q4

REPORT INFORMATION
  Report Type: 
  Country: US (occurrence: US)
  Receive Date: 20120927
  Receipt Date: 20120927
  Transmission Date: 20130627
  Serious: No
  Sender: FDA-Public Use
  Company Number: US-AMGEN-USASP2012051269

PATIENT
  Age: 48 Year
  Sex: Female
  Weight: 60.32 kg

DRUGS (19)
  1. PROLIA [Suspect]
     Indication: OSTEOPOROSIS POSTMENOPAUSAL
     Dosage: 60 mg, q6mo
     Route: 058
     Dates: start: 20120206
  2. PROLIA [Suspect]
     Dosage: 60 mg, q6mo
     Route: 058
     Dates: start: 201204
  3. PROLIA [Suspect]
     Dosage: 60 mg, q6mo
     Route: 058
     Dates: start: 20120813
  4. ABILIFY [Concomitant]
     Dosage: 2 mg, qd
     Dates: start: 20120702
  5. ADVAIR [Concomitant]
     Dosage: UNK UNK, q12h
     Dates: start: 20120813
  6. CRESTOR [Concomitant]
     Dosage: 20 mg, UNK
     Route: 048
     Dates: start: 20120813
  7. FIORINAL /00090401/ [Concomitant]
     Dosage: UNK UNK, q4h
     Route: 048
     Dates: start: 20120813
  8. LANSOPRAZOLE [Concomitant]
     Dosage: 30 mg, qd
     Route: 048
     Dates: start: 20120813
  9. OPANA [Concomitant]
     Dosage: 5 mg, q12h
     Route: 048
     Dates: start: 20120404
  10. PROVENTIL                          /00139501/ [Concomitant]
     Dosage: 90 mug, UNK
     Dates: start: 20120813
  11. SINGULAIR [Concomitant]
     Dosage: 10 mg, qhs
     Dates: start: 20120813
  12. SUMAVEL DOSEPRO [Concomitant]
     Dosage: 6 mg, UNK
     Route: 058
     Dates: start: 20120702
  13. VERAMYST [Concomitant]
     Dosage: 27.5 mug, UNK
     Dates: start: 20120813
  14. VICODIN [Concomitant]
     Dosage: 5 mg, UNK
  15. ZOFRAN                             /00955301/ [Concomitant]
     Dosage: 2 mg, UNK
     Route: 048
     Dates: start: 20120822
  16. WELLBUTRIN [Concomitant]
     Dosage: 100 mg, bid
     Dates: start: 20120702
  17. ALBUTEROL                          /00139501/ [Concomitant]
     Dosage: UNK
     Dates: start: 20120206
  18. ASTEPRO [Concomitant]
     Dosage: 205.5 mug, q12h
     Dates: start: 20110927
  19. COMBIPATCH [Concomitant]
     Dosage: UNK UNK, 2 times/wk
     Dates: start: 20120418

REACTIONS (1)
  - Inappropriate schedule of drug administration [Unknown]
